FAERS Safety Report 8233383-5 (Version None)
Quarter: 2012Q1

REPORT INFORMATION
  Report Type: 
  Country: None (occurrence: None)
  Receive Date: 20120323
  Receipt Date: 20120323
  Transmission Date: 20120608
  Serious: No
  Sender: FDA-Public Use
  Company Number: None

PATIENT

DRUGS (2)
  1. LOVENOX [Suspect]
     Dosage: INJECTABLE SINGLE DOSE SYRINGE TEN 0.4 ML SYRINGE
     Route: 042
  2. ENOXAPARIN SODIUM [Suspect]
     Dosage: INJECTABLE SINGLE DOSE SYRINGES TEN 0.6 ML
     Route: 042

REACTIONS (3)
  - PRODUCT OUTER PACKAGING ISSUE [None]
  - CIRCUMSTANCE OR INFORMATION CAPABLE OF LEADING TO MEDICATION ERROR [None]
  - MEDICATION ERROR [None]
